FAERS Safety Report 6887362-0 (Version None)
Quarter: 2010Q3

REPORT INFORMATION
  Report Type: 
  Country: None (occurrence: None)
  Receive Date: 20100730
  Receipt Date: 20091022
  Transmission Date: 20110219
  Serious: No
  Sender: FDA-Public Use
  Company Number: A0812973A

PATIENT
  Age: 49 Year
  Sex: Female

DRUGS (4)
  1. IMITREX [Suspect]
     Indication: MIGRAINE
     Route: 048
     Dates: start: 20090101, end: 20090101
  2. IMITREX [Suspect]
     Route: 045
     Dates: start: 20080101, end: 20080101
  3. IMITREX [Suspect]
     Route: 058
     Dates: start: 20060101
  4. ALLERGY DESENSITIZATION [Concomitant]

REACTIONS (2)
  - DRUG INEFFECTIVE [None]
  - RETCHING [None]
